FAERS Safety Report 10316858 (Version 2)
Quarter: 2014Q3

REPORT INFORMATION
  Report Type: Other
  Country: US (occurrence: US)
  Receive Date: 20140719
  Receipt Date: 20140719
  Transmission Date: 20150326
  Serious: Yes (Hospitalization, Other)
  Sender: FDA-Public Use
  Company Number: US-GSKPPD-2014GSK002651

PATIENT
  Age: 58 Year
  Sex: Female
  Weight: 96.25 kg

DRUGS (5)
  1. METOPROLOL [Concomitant]
     Active Substance: METOPROLOL
  2. TOPROL XL [Concomitant]
     Active Substance: METOPROLOL SUCCINATE
  3. AVANDIA [Suspect]
     Active Substance: ROSIGLITAZONE MALEATE
     Indication: DIABETES MELLITUS
     Route: 048
     Dates: start: 200602, end: 201001
  4. ENALAPRIL [Concomitant]
     Active Substance: ENALAPRIL
  5. PLAVIX [Concomitant]
     Active Substance: CLOPIDOGREL BISULFATE

REACTIONS (1)
  - Cardiac failure congestive [Not Recovered/Not Resolved]

NARRATIVE: CASE EVENT DATE: 20060302
